FAERS Safety Report 9500440 (Version 1)
Quarter: 2013Q3

REPORT INFORMATION
  Report Type: Spontaneous
  Country: US (occurrence: None)
  Receive Date: 20130904
  Receipt Date: 20130904
  Transmission Date: 20140515
  Serious: No
  Sender: FDA-Public Use
  Company Number: None

PATIENT
  Age: 40 Year
  Sex: Male
  Weight: 135.17 kg

DRUGS (1)
  1. VIIBRYD 10 MG, 20 MG , 40 MG FOREST PHARMACEUTICALS [Suspect]
     Indication: DEPRESSION
     Dosage: 1 PILL ONCE DAILY TAKEN BY MOUTH?30 DAY SAMPLE PACK
     Route: 048
     Dates: start: 20130815, end: 20130903

REACTIONS (8)
  - Mood altered [None]
  - Abnormal behaviour [None]
  - Irritability [None]
  - Anger [None]
  - Hostility [None]
  - Aggression [None]
  - Depression [None]
  - Anxiety [None]
